FAERS Safety Report 5511908-8 (Version None)
Quarter: 2007Q4

REPORT INFORMATION
  Report Type: 
  Country: None (occurrence: None)
  Receive Date: 20071109
  Receipt Date: 20071030
  Transmission Date: 20080405
  Serious: Yes (Other)
  Sender: FDA-Public Use
  Company Number: US-PFIZER INC-2007091743

PATIENT
  Sex: Female

DRUGS (10)
  1. DILANTIN [Suspect]
     Indication: CONVULSION
     Route: 048
  2. OMEPRAZOLE [Concomitant]
  3. PHENOBARBITAL TAB [Concomitant]
  4. ACTONEL [Concomitant]
  5. FUROSEMIDE [Concomitant]
  6. PROPRANOLOL [Concomitant]
  7. KLONOPIN [Concomitant]
  8. ALBUTEROL [Concomitant]
  9. DARVOCET [Concomitant]
  10. FLOVENT [Concomitant]

REACTIONS (5)
  - CONVULSION [None]
  - DIZZINESS [None]
  - MEDICATION ERROR [None]
  - NERVOUSNESS [None]
  - VISUAL ACUITY REDUCED [None]
